FAERS Safety Report 12820911 (Version 2)
Quarter: 2018Q1

REPORT INFORMATION
  Report Type: Report from Study
  Country: US (occurrence: US)
  Receive Date: 20161007
  Receipt Date: 20180215
  Transmission Date: 20180508
  Serious: Yes (Other)
  Sender: FDA-Public Use
  Company Number: US-ROCHE-1837830

PATIENT
  Age: 53 Year
  Sex: Female
  Weight: 87.8 kg

DRUGS (17)
  1. BEVACIZUMAB. [Suspect]
     Active Substance: BEVACIZUMAB
     Route: 042
     Dates: start: 20150211
  2. VELIPARIB [Suspect]
     Active Substance: VELIPARIB
     Dosage: ON DAYS 1-21 AS PER PROTOCOL
     Route: 048
     Dates: start: 20140415
  3. BEVACIZUMAB. [Suspect]
     Active Substance: BEVACIZUMAB
     Route: 042
     Dates: start: 20140218
  4. BEVACIZUMAB. [Suspect]
     Active Substance: BEVACIZUMAB
     Route: 042
     Dates: start: 20140318
  5. BEVACIZUMAB. [Suspect]
     Active Substance: BEVACIZUMAB
     Route: 042
     Dates: start: 20140415
  6. VELIPARIB [Suspect]
     Active Substance: VELIPARIB
     Dosage: ON DAYS 1-21 AS PER PROTOCOL
     Route: 048
     Dates: start: 20140318
  7. VELIPARIB [Suspect]
     Active Substance: VELIPARIB
     Dosage: ON DAYS 1-21 AS PER PROTOCOL
     Route: 048
     Dates: start: 20140514
  8. BEVACIZUMAB. [Suspect]
     Active Substance: BEVACIZUMAB
     Route: 042
     Dates: start: 20141202
  9. VELIPARIB [Suspect]
     Active Substance: VELIPARIB
     Dosage: ON DAYS 1-21 AS PER PROTOCOL
     Route: 048
     Dates: start: 20140218
  10. BEVACIZUMAB. [Suspect]
     Active Substance: BEVACIZUMAB
     Route: 042
     Dates: start: 20140930
  11. BEVACIZUMAB. [Suspect]
     Active Substance: BEVACIZUMAB
     Indication: OVARIAN EPITHELIAL CANCER
     Dosage: OVER 30-90 MINUTES AS PER PROTOCOL?LAST TREATMENT RECEIVED ON 20/MAY/2015
     Route: 042
     Dates: start: 20140128
  12. BEVACIZUMAB. [Suspect]
     Active Substance: BEVACIZUMAB
     Route: 042
     Dates: start: 20141021
  13. BEVACIZUMAB. [Suspect]
     Active Substance: BEVACIZUMAB
     Route: 042
     Dates: start: 20150120
  14. BEVACIZUMAB. [Suspect]
     Active Substance: BEVACIZUMAB
     Route: 042
     Dates: start: 20140514
  15. BEVACIZUMAB. [Suspect]
     Active Substance: BEVACIZUMAB
     Route: 042
     Dates: start: 20141231
  16. VELIPARIB [Suspect]
     Active Substance: VELIPARIB
     Dosage: ON DAYS 1-21 AS PER PROTOCOL
     Route: 048
     Dates: start: 20140128
  17. VELIPARIB [Suspect]
     Active Substance: VELIPARIB
     Indication: OVARIAN EPITHELIAL CANCER
     Dosage: ON DAYS 1-21 AS PER PROTOCOL
     Route: 048
     Dates: start: 20140109

REACTIONS (4)
  - Neutrophil count decreased [Unknown]
  - Hypertension [Unknown]
  - Anaemia [Unknown]
  - White blood cell count decreased [Unknown]
